FAERS Safety Report 6035167-5 (Version None)
Quarter: 2009Q1

REPORT INFORMATION
  Report Type: 
  Country: None (occurrence: None)
  Receive Date: 20090112
  Receipt Date: 20090105
  Transmission Date: 20090719
  Serious: Yes (Death, Hospitalization, Other)
  Sender: FDA-Public Use
  Company Number: IN-ROXANE LABORATORIES, INC.-2009-RO-00013RO

PATIENT
  Age: 14 Year
  Sex: Female

DRUGS (2)
  1. ONDANSETRON [Suspect]
     Route: 030
  2. ANTACID TAB [Suspect]
     Indication: ABDOMINAL PAIN

REACTIONS (7)
  - DEATH [None]
  - DIZZINESS [None]
  - SENSORY DISTURBANCE [None]
  - SHOCK [None]
  - VENTRICULAR FIBRILLATION [None]
  - VENTRICULAR TACHYCARDIA [None]
  - VOMITING [None]
